FAERS Safety Report 25603291 (Version 1)
Quarter: 2025Q3

REPORT INFORMATION
  Report Type: Report from Study
  Country: EU (occurrence: EU)
  Receive Date: 20250724
  Receipt Date: 20250724
  Transmission Date: 20251020
  Serious: Yes (Hospitalization, Other)
  Sender: MERCK SHARP & DOHME LLC
  Company Number: EU-009507513-2274843

PATIENT
  Age: 77 Year
  Sex: Female

DRUGS (23)
  1. WINREVAIR [Suspect]
     Active Substance: SOTATERCEPT-CSRK
     Indication: Pulmonary arterial hypertension
     Dates: start: 202502
  2. WINREVAIR [Suspect]
     Active Substance: SOTATERCEPT-CSRK
  3. WINREVAIR [Suspect]
     Active Substance: SOTATERCEPT-CSRK
  4. WINREVAIR [Suspect]
     Active Substance: SOTATERCEPT-CSRK
  5. WINREVAIR [Suspect]
     Active Substance: SOTATERCEPT-CSRK
     Indication: Pulmonary arterial hypertension
     Dates: start: 2025
  6. WINREVAIR [Suspect]
     Active Substance: SOTATERCEPT-CSRK
  7. WINREVAIR [Suspect]
     Active Substance: SOTATERCEPT-CSRK
  8. WINREVAIR [Suspect]
     Active Substance: SOTATERCEPT-CSRK
  9. WINREVAIR [Suspect]
     Active Substance: SOTATERCEPT-CSRK
  10. WINREVAIR [Suspect]
     Active Substance: SOTATERCEPT-CSRK
  11. WINREVAIR [Suspect]
     Active Substance: SOTATERCEPT-CSRK
  12. WINREVAIR [Suspect]
     Active Substance: SOTATERCEPT-CSRK
  13. WINREVAIR [Suspect]
     Active Substance: SOTATERCEPT-CSRK
  14. WINREVAIR [Suspect]
     Active Substance: SOTATERCEPT-CSRK
  15. WINREVAIR [Suspect]
     Active Substance: SOTATERCEPT-CSRK
  16. WINREVAIR [Suspect]
     Active Substance: SOTATERCEPT-CSRK
  17. WINREVAIR [Suspect]
     Active Substance: SOTATERCEPT-CSRK
  18. WINREVAIR [Suspect]
     Active Substance: SOTATERCEPT-CSRK
  19. WINREVAIR [Suspect]
     Active Substance: SOTATERCEPT-CSRK
  20. WINREVAIR [Suspect]
     Active Substance: SOTATERCEPT-CSRK
  21. REMODULIN [Concomitant]
     Active Substance: TREPROSTINIL
     Indication: Pulmonary arterial hypertension
  22. OPSUMIT [Concomitant]
     Active Substance: MACITENTAN
     Indication: Pulmonary arterial hypertension
  23. REVATIO [Concomitant]
     Active Substance: SILDENAFIL CITRATE
     Indication: Pulmonary arterial hypertension

REACTIONS (14)
  - Intestinal haemorrhage [Unknown]
  - Inappropriate schedule of product administration [Unknown]
  - Blood iron decreased [Unknown]
  - Infection [Unknown]
  - Oral pustule [Not Recovered/Not Resolved]
  - Feeling abnormal [Unknown]
  - Telangiectasia [Not Recovered/Not Resolved]
  - Nasopharyngitis [Recovering/Resolving]
  - Oedema peripheral [Unknown]
  - Haemoglobin decreased [Recovering/Resolving]
  - Haemoglobin decreased [Not Recovered/Not Resolved]
  - Haemoglobin decreased [Unknown]
  - Asthenia [Unknown]
  - Fatigue [Unknown]

NARRATIVE: CASE EVENT DATE: 20250101
